FAERS Safety Report 18338587 (Version 1)
Quarter: 2020Q4

REPORT INFORMATION
  Report Type: Spontaneous
  Country: SE (occurrence: SE)
  Receive Date: 20201002
  Receipt Date: 20201002
  Transmission Date: 20210113
  Serious: Yes (Disabling)
  Sender: FDA-Public Use
  Company Number: SE-TEVA-2020-SE-1832496

PATIENT
  Age: 78 Year
  Sex: Female
  Weight: 75 kg

DRUGS (4)
  1. ALENDRONAT [Suspect]
     Active Substance: ALENDRONATE SODIUM
     Indication: OSTEOPOROSIS
     Dosage: 1 / WEEK, 70 MG
     Dates: start: 201709, end: 20200825
  2. MULTAQ [Concomitant]
     Active Substance: DRONEDARONE
  3. ELIQUIS [Concomitant]
     Active Substance: APIXABAN
  4. METOPROLOL. [Concomitant]
     Active Substance: METOPROLOL

REACTIONS (3)
  - Tooth extraction [Not Recovered/Not Resolved]
  - Gingival bleeding [Not Recovered/Not Resolved]
  - Gingivitis [Not Recovered/Not Resolved]

NARRATIVE: CASE EVENT DATE: 2019
